FAERS Safety Report 24278879 (Version 2)
Quarter: 2024Q3

REPORT INFORMATION
  Report Type: Spontaneous
  Country: DE (occurrence: DE)
  Receive Date: 20240903
  Receipt Date: 20240924
  Transmission Date: 20241017
  Serious: Yes (Hospitalization, Other)
  Sender: MYLAN
  Company Number: DE-TEVA-VS-3234720

PATIENT
  Age: 55 Year
  Sex: Male

DRUGS (7)
  1. TELMISARTAN [Suspect]
     Active Substance: TELMISARTAN
     Indication: Hypertension
     Dosage: 40 MILLIGRAM, QD (MORNING/ (DOSAGE: 2-0-0), APPROXIMATELY FOR 6 YEARS)
     Route: 048
     Dates: end: 2023
  2. TELMISARTAN [Suspect]
     Active Substance: TELMISARTAN
     Dosage: 40 MILLIGRAM, QD (MORNING/ (DOSAGE: 2-0-0), APPROXIMATELY FOR 6 YEARS)
     Route: 048
     Dates: start: 2024
  3. TELMISARTAN [Suspect]
     Active Substance: TELMISARTAN
     Dosage: 20 MILLIGRAM, QD (MORNING/ (DOSAGE: 1-0-0))
     Route: 048
     Dates: start: 202408
  4. URAPIDIL [Suspect]
     Active Substance: URAPIDIL
     Indication: Product used for unknown indication
     Dosage: UNK
     Route: 065
  5. SERTRALINE HYDROCHLORIDE [Suspect]
     Active Substance: SERTRALINE HYDROCHLORIDE
     Indication: Cluster headache
     Dosage: 75 MILLIGRAM
     Route: 065
     Dates: start: 2024
  6. SERTRALINE HYDROCHLORIDE [Suspect]
     Active Substance: SERTRALINE HYDROCHLORIDE
     Dosage: UNK
     Route: 065
     Dates: start: 202405, end: 202408
  7. SERTRALINE HYDROCHLORIDE [Suspect]
     Active Substance: SERTRALINE HYDROCHLORIDE
     Dosage: UNK
     Route: 065
     Dates: start: 20240811

REACTIONS (10)
  - Vitreous floaters [Unknown]
  - Blood pressure fluctuation [Unknown]
  - Pulse abnormal [Unknown]
  - Joint injury [Unknown]
  - Fall [Unknown]
  - Skin laceration [Unknown]
  - Erectile dysfunction [Unknown]
  - Syncope [Recovered/Resolved]
  - Muscle spasms [Not Recovered/Not Resolved]
  - Drug ineffective [Unknown]

NARRATIVE: CASE EVENT DATE: 20240101
